FAERS Safety Report 25528327 (Version 3)
Quarter: 2025Q3

REPORT INFORMATION
  Report Type: Spontaneous
  Country: EU (occurrence: EU)
  Receive Date: 20250708
  Receipt Date: 20250912
  Transmission Date: 20251021
  Serious: Yes (Life-Threatening, Hospitalization)
  Sender: SANDOZ
  Company Number: EU-ASTRAZENECA-202504GLO023366DE

PATIENT
  Age: 29 Year
  Sex: Female
  Weight: 101 kg

DRUGS (65)
  1. CARBOPLATIN [Suspect]
     Active Substance: CARBOPLATIN
     Indication: Non-small cell lung cancer
     Route: 065
     Dates: start: 20250123, end: 20250123
  2. CARBOPLATIN [Suspect]
     Active Substance: CARBOPLATIN
     Indication: Triple negative breast cancer
     Route: 065
     Dates: start: 20250206, end: 20250206
  3. CARBOPLATIN [Suspect]
     Active Substance: CARBOPLATIN
     Route: 042
     Dates: start: 20241114, end: 20250206
  4. CARBOPLATIN [Suspect]
     Active Substance: CARBOPLATIN
     Route: 065
     Dates: start: 20241227, end: 20241227
  5. CARBOPLATIN [Suspect]
     Active Substance: CARBOPLATIN
     Route: 065
     Dates: start: 20250102, end: 20250102
  6. CARBOPLATIN [Suspect]
     Active Substance: CARBOPLATIN
     Route: 065
     Dates: start: 20250109, end: 20250109
  7. CARBOPLATIN [Suspect]
     Active Substance: CARBOPLATIN
     Route: 065
     Dates: start: 20250116, end: 20250116
  8. CYCLOPHOSPHAMIDE [Suspect]
     Active Substance: CYCLOPHOSPHAMIDE
     Indication: Triple negative breast cancer
     Dosage: 600 MILLIGRAM/SQ. METER, ONCE EVERY 3 WK
     Route: 042
     Dates: start: 20250213, end: 20250417
  9. EPIRUBICIN [Suspect]
     Active Substance: EPIRUBICIN
     Indication: Non-small cell lung cancer
     Dosage: 90 MILLIGRAM/SQ. METER, ONCE EVERY 3 WK
     Route: 065
     Dates: start: 20250213, end: 20250213
  10. EPIRUBICIN [Suspect]
     Active Substance: EPIRUBICIN
     Indication: Triple negative breast cancer
     Dosage: 90 MILLIGRAM/SQ. METER, ONCE EVERY 3 WK
     Route: 065
     Dates: start: 20250306, end: 20250306
  11. EPIRUBICIN [Suspect]
     Active Substance: EPIRUBICIN
     Dosage: 90 MILLIGRAM/SQ. METER, ONCE EVERY 3 WK
     Route: 065
     Dates: start: 20250327, end: 20250327
  12. EPIRUBICIN [Suspect]
     Active Substance: EPIRUBICIN
     Dosage: 90 MILLIGRAM/SQ. METER, ONCE EVERY 3 WK
     Route: 065
     Dates: start: 20250417, end: 20250417
  13. PACLITAXEL [Suspect]
     Active Substance: PACLITAXEL
     Dosage: 80 MILLIGRAM/SQ. METER, ONCE EVERY 3 WK
     Route: 042
     Dates: start: 20241128, end: 20241128
  14. PACLITAXEL [Suspect]
     Active Substance: PACLITAXEL
     Dosage: 80 MILLIGRAM/SQ. METER, ONCE EVERY 3 WK
     Route: 042
     Dates: start: 20241205, end: 20241205
  15. PACLITAXEL [Suspect]
     Active Substance: PACLITAXEL
     Dosage: 80 MILLIGRAM/SQ. METER, ONCE EVERY 3 WK
     Route: 042
     Dates: start: 20241212, end: 20241212
  16. PACLITAXEL [Suspect]
     Active Substance: PACLITAXEL
     Dosage: 80 MILLIGRAM/SQ. METER, ONCE EVERY 3 WK
     Route: 042
     Dates: start: 20241219, end: 20241219
  17. PACLITAXEL [Suspect]
     Active Substance: PACLITAXEL
     Dosage: 80 MILLIGRAM/SQ. METER, ONCE EVERY 3 WK
     Route: 042
     Dates: start: 20241227, end: 20241227
  18. PACLITAXEL [Suspect]
     Active Substance: PACLITAXEL
     Indication: Non-small cell lung cancer
     Dosage: 80 MILLIGRAM/SQ. METER, ONCE EVERY 3 WK
     Route: 065
     Dates: start: 20250206, end: 20250206
  19. PACLITAXEL [Suspect]
     Active Substance: PACLITAXEL
     Indication: Triple negative breast cancer
     Dosage: 80 MILLIGRAM/SQ. METER, ONCE EVERY 3 WK
     Route: 065
     Dates: start: 20241121, end: 20241121
  20. PACLITAXEL [Suspect]
     Active Substance: PACLITAXEL
     Dosage: 80 MILLIGRAM/SQ. METER, ONCE EVERY 3 WK
     Route: 065
     Dates: start: 20241114, end: 20241114
  21. PACLITAXEL [Suspect]
     Active Substance: PACLITAXEL
     Dosage: 80 MILLIGRAM/SQ. METER, ONCE EVERY 3 WK
     Route: 065
     Dates: start: 20250102, end: 20250102
  22. PACLITAXEL [Suspect]
     Active Substance: PACLITAXEL
     Dosage: 80 MILLIGRAM/SQ. METER, ONCE EVERY 3 WK
     Route: 065
     Dates: start: 20250109, end: 20250109
  23. PACLITAXEL [Suspect]
     Active Substance: PACLITAXEL
     Dosage: 80 MILLIGRAM/SQ. METER, ONCE EVERY 3 WK
     Route: 065
     Dates: start: 20250116, end: 20250116
  24. PACLITAXEL [Suspect]
     Active Substance: PACLITAXEL
     Dosage: 80 MILLIGRAM/SQ. METER, ONCE EVERY 3 WK
     Route: 065
     Dates: start: 20250123, end: 20250123
  25. PACLITAXEL [Suspect]
     Active Substance: PACLITAXEL
     Route: 065
     Dates: start: 20241114, end: 20250206
  26. PEMBROLIZUMAB [Suspect]
     Active Substance: PEMBROLIZUMAB
     Indication: Non-small cell lung cancer
     Dosage: 200 MG, ONCE EVERY 3 WK
     Route: 042
     Dates: start: 20250213, end: 20250213
  27. PEMBROLIZUMAB [Suspect]
     Active Substance: PEMBROLIZUMAB
     Indication: Triple negative breast cancer
     Dosage: 200 MG, ONCE EVERY 3 WK
     Route: 042
     Dates: start: 20250116, end: 20250116
  28. PEMBROLIZUMAB [Suspect]
     Active Substance: PEMBROLIZUMAB
     Dosage: 200 MG, ONCE EVERY 3 WK
     Route: 042
     Dates: start: 20241114, end: 20241114
  29. PEMBROLIZUMAB [Suspect]
     Active Substance: PEMBROLIZUMAB
     Dosage: 200 MG, ONCE EVERY 3 WK
     Route: 042
     Dates: start: 20241114, end: 20250417
  30. PEMBROLIZUMAB [Suspect]
     Active Substance: PEMBROLIZUMAB
     Dosage: 200 MG, ONCE EVERY 3 WK
     Route: 042
     Dates: start: 20241205, end: 20241205
  31. PEMBROLIZUMAB [Suspect]
     Active Substance: PEMBROLIZUMAB
     Dosage: 200 MG, ONCE EVERY 3 WK
     Route: 042
     Dates: start: 20241227, end: 20241227
  32. PEMBROLIZUMAB [Suspect]
     Active Substance: PEMBROLIZUMAB
     Dosage: 200 MG, ONCE EVERY 3 WK
     Route: 042
     Dates: start: 20250306, end: 20250306
  33. PEMBROLIZUMAB [Suspect]
     Active Substance: PEMBROLIZUMAB
     Dosage: 200 MG, ONCE EVERY 3 WK
     Route: 042
     Dates: start: 20250327, end: 20250327
  34. PEMBROLIZUMAB [Suspect]
     Active Substance: PEMBROLIZUMAB
     Dosage: 200 MG, ONCE EVERY 3 WK
     Route: 042
     Dates: start: 20250417, end: 20250417
  35. Akynzeo [Concomitant]
     Indication: Premedication
     Route: 048
     Dates: start: 20250213
  36. AMOXICILLIN\CLAVULANATE POTASSIUM [Concomitant]
     Active Substance: AMOXICILLIN\CLAVULANATE POTASSIUM
     Indication: Otitis media
     Dosage: 1000 MG, Q12H(TWICE PER DAY)
     Route: 048
     Dates: start: 20250128, end: 20250203
  37. CIPROFLOXACIN [Concomitant]
     Active Substance: CIPROFLOXACIN
     Indication: Infection prophylaxis
     Dosage: TWICE PER DAY
     Route: 048
     Dates: start: 20250222, end: 20250224
  38. CIPROFLOXACIN [Concomitant]
     Active Substance: CIPROFLOXACIN
     Indication: Neutropenia
     Dosage: TWICE PER DAY
     Route: 048
     Dates: start: 20250404, end: 20250406
  39. CIPROFLOXACIN [Concomitant]
     Active Substance: CIPROFLOXACIN
     Indication: Otitis media
     Dosage: TWICE PER DAY
     Route: 048
     Dates: start: 20250128, end: 20250203
  40. CIPROFLOXACIN [Concomitant]
     Active Substance: CIPROFLOXACIN
     Dosage: TWICE PER DAY
     Route: 048
     Dates: start: 20250128, end: 20250131
  41. CIPROFLOXACIN [Concomitant]
     Active Substance: CIPROFLOXACIN
     Dosage: TWICE PER DAY
     Route: 065
     Dates: start: 20250128, end: 20250131
  42. CIPROFLOXACIN [Concomitant]
     Active Substance: CIPROFLOXACIN
     Dosage: TWICE PER DAY
     Route: 065
     Dates: start: 20250128, end: 20250203
  43. CIPROFLOXACIN [Concomitant]
     Active Substance: CIPROFLOXACIN
     Dosage: TWICE PER DAY
     Route: 065
     Dates: start: 20250222, end: 20250224
  44. CIPROFLOXACIN [Concomitant]
     Active Substance: CIPROFLOXACIN
     Dosage: TWICE PER DAY
     Route: 065
     Dates: start: 20250404, end: 20250406
  45. DEXAMETHASONE [Concomitant]
     Active Substance: DEXAMETHASONE
     Indication: Premedication
     Route: 048
     Dates: start: 20250213
  46. DEXAMETHASONE [Concomitant]
     Active Substance: DEXAMETHASONE
     Indication: Premedication
     Route: 048
     Dates: start: 20241114, end: 20250206
  47. FILGRASTIM [Concomitant]
     Active Substance: FILGRASTIM
     Indication: Neutropenia
     Dosage: DAILY
     Route: 058
     Dates: start: 20250222, end: 20250224
  48. FILGRASTIM [Concomitant]
     Active Substance: FILGRASTIM
     Dosage: DAILY
     Route: 065
     Dates: start: 20250222, end: 20250224
  49. GRANISETRON [Concomitant]
     Active Substance: GRANISETRON
     Indication: Nausea
     Route: 048
     Dates: start: 20241114, end: 20250206
  50. POLYETHYLENE GLYCOLS [Concomitant]
     Active Substance: POLYETHYLENE GLYCOLS
     Indication: Constipation prophylaxis
     Route: 048
     Dates: start: 20250312, end: 20250317
  51. NEULASTA [Concomitant]
     Active Substance: PEGFILGRASTIM
     Indication: Prophylaxis
     Route: 058
     Dates: start: 20250307
  52. NEULASTA [Concomitant]
     Active Substance: PEGFILGRASTIM
     Indication: Prophylaxis
     Route: 058
     Dates: start: 20250417
  53. NEULASTA [Concomitant]
     Active Substance: PEGFILGRASTIM
     Route: 065
     Dates: start: 20250307
  54. NEULASTA [Concomitant]
     Active Substance: PEGFILGRASTIM
     Route: 065
     Dates: start: 20250417
  55. NEUPOGEN [Concomitant]
     Active Substance: FILGRASTIM
     Indication: Neutropenia
     Route: 058
     Dates: start: 20250314, end: 20250315
  56. CIPROFLOXACIN HYDROCHLORIDE [Concomitant]
     Active Substance: CIPROFLOXACIN HYDROCHLORIDE
     Indication: Otitis media
     Route: 001
     Dates: start: 20250128, end: 20250202
  57. PANTOPRAZOLE SODIUM [Concomitant]
     Active Substance: PANTOPRAZOLE SODIUM
     Indication: Dyspepsia
     Route: 048
     Dates: start: 20241121
  58. ACETAMINOPHEN [Concomitant]
     Active Substance: ACETAMINOPHEN
     Indication: Pyrexia
     Route: 048
     Dates: start: 20250312, end: 20250315
  59. ACETAMINOPHEN [Concomitant]
     Active Substance: ACETAMINOPHEN
     Route: 065
     Dates: start: 20250312, end: 20250315
  60. PIPERACILLIN SODIUM\TAZOBACTAM SODIUM [Concomitant]
     Active Substance: PIPERACILLIN SODIUM\TAZOBACTAM SODIUM
     Indication: Febrile neutropenia
     Route: 042
     Dates: start: 20250425
  61. Unacid [Concomitant]
     Indication: Febrile neutropenia
     Dosage: 3 G, Q8H(3 TIMES PER DAY)
     Route: 042
     Dates: start: 20250312, end: 20250317
  62. Unacid [Concomitant]
     Indication: Nasopharyngitis
     Route: 048
     Dates: start: 20250218, end: 20250222
  63. VITAMIN D3 [Concomitant]
     Active Substance: CHOLECALCIFEROL
     Indication: Vitamin supplementation
     Dosage: DAILY
     Route: 065
     Dates: start: 20250110
  64. VITAMIN D3 [Concomitant]
     Active Substance: CHOLECALCIFEROL
     Dosage: DAILY
     Route: 065
     Dates: start: 20250110
  65. GOSERELIN [Concomitant]
     Active Substance: GOSERELIN
     Indication: Prophylaxis
     Dosage: 3.6 MG, Q4W(EVERY 4 WEEKS)
     Route: 058
     Dates: start: 20241114

REACTIONS (1)
  - Febrile neutropenia [Recovered/Resolved]

NARRATIVE: CASE EVENT DATE: 20250425
